FAERS Safety Report 4850685-0 (Version None)
Quarter: 2005Q4

REPORT INFORMATION
  Report Type: 
  Country: None (occurrence: None)
  Receive Date: 20051208
  Receipt Date: 20051208
  Transmission Date: 20060501
  Serious: Yes (Hospitalization, Other)
  Sender: FDA-Public Use
  Company Number: None

PATIENT
  Age: 55 Year
  Sex: Female
  Weight: 62.5964 kg

DRUGS (1)
  1. LEVAQUIN [Suspect]
     Indication: CYSTITIS
     Dosage: ONE PILL -350-50MGS?- ONCE DAILY PO SEE IMAGE
     Route: 048
     Dates: start: 20051121, end: 20051122

REACTIONS (10)
  - BLEPHAROSPASM [None]
  - CHEST DISCOMFORT [None]
  - CHEST PAIN [None]
  - DIZZINESS [None]
  - HEADACHE [None]
  - INSOMNIA [None]
  - MIGRAINE [None]
  - MUSCLE TWITCHING [None]
  - NAUSEA [None]
  - SENSATION OF HEAVINESS [None]
